FAERS Safety Report 8229014-0 (Version None)
Quarter: 2012Q1

REPORT INFORMATION
  Report Type: 
  Country: None (occurrence: None)
  Receive Date: 20120322
  Receipt Date: 20120316
  Transmission Date: 20120608
  Serious: Yes (Other)
  Sender: FDA-Public Use
  Company Number: US-PFIZER INC-2012071268

PATIENT
  Sex: Female
  Weight: 69.841 kg

DRUGS (1)
  1. SUTENT [Suspect]
     Dosage: 37.5 MG (12.5 MG X 3 CAPSULES)
     Dates: start: 20120227

REACTIONS (2)
  - WHITE BLOOD CELL COUNT DECREASED [None]
  - WEIGHT DECREASED [None]
